FAERS Safety Report 8933288 (Version 1)
Quarter: 2012Q4

REPORT INFORMATION
  Report Type: Report from Study
  Country: JP (occurrence: JP)
  Receive Date: 20121129
  Receipt Date: 20121129
  Transmission Date: 20130627
  Serious: Yes (Other)
  Sender: FDA-Public Use
  Company Number: JP-009507513-2012SP022460

PATIENT
  Age: 37 Year
  Sex: Male
  Weight: 86 kg

DRUGS (12)
  1. PEGINTERFERON ALFA-2B [Suspect]
     Indication: CHRONIC HEPATITIS C
     Dosage: 1.4 Microgram per kilogram, qw
     Route: 058
     Dates: start: 20120111, end: 20120125
  2. PEGINTERFERON ALFA-2B [Suspect]
     Dosage: 0.7 Microgram per kilogram, qw
     Route: 058
     Dates: start: 20120201, end: 20120217
  3. PEGINTERFERON ALFA-2B [Suspect]
     Dosage: 1.16 Microgram per kilogram, qw
     Route: 058
     Dates: start: 20120224, end: 20120224
  4. PEGINTERFERON ALFA-2B [Suspect]
     Dosage: 0.93 Microgram per kilogram, qw
     Route: 058
     Dates: start: 20120302, end: 20120302
  5. PEGINTERFERON ALFA-2B [Suspect]
     Dosage: 0.75 Microgram per kilogram, qw
     Route: 058
     Dates: start: 20120310, end: 20120316
  6. PEGINTERFERON ALFA-2B [Suspect]
     Dosage: 0.47 Microgram per kilogram, qw
     Route: 058
     Dates: start: 20120323, end: 20120323
  7. PEGINTERFERON ALFA-2B [Suspect]
     Dosage: 0.58 Microgram per kilogram, qw
     Route: 058
     Dates: start: 20120330, end: 20120406
  8. PEGINTERFERON ALFA-2B [Suspect]
     Dosage: 0.7 Microgram per kilogram, qw
     Route: 058
     Dates: start: 20120413, end: 20120419
  9. PEGINTERFERON ALFA-2B [Suspect]
     Dosage: 0.93 Microgram per kilogram, qw
     Route: 058
     Dates: start: 20120425
  10. REBETOL [Suspect]
     Indication: CHRONIC HEPATITIS C
     Dosage: 1000 mg, QD
     Route: 048
     Dates: start: 20120111
  11. TELAVIC [Suspect]
     Indication: CHRONIC HEPATITIS C
     Dosage: 2250 mg, QD
     Route: 048
     Dates: start: 20120111, end: 20120406
  12. JANUVIA TABLETS 50MG [Concomitant]
     Indication: DIABETES MELLITUS
     Dosage: 50 mg, QD
     Route: 048

REACTIONS (1)
  - Platelet count decreased [Recovered/Resolved]
